FAERS Safety Report 17435536 (Version 2)
Quarter: 2020Q1

REPORT INFORMATION
  Report Type: Report from Study
  Country: US (occurrence: US)
  Receive Date: 20200219
  Receipt Date: 20200312
  Transmission Date: 20200409
  Serious: Yes (Hospitalization)
  Sender: FDA-Public Use
  Company Number: US-VERTEX PHARMACEUTICALS-2020-003182

PATIENT
  Age: 22 Year
  Sex: Male

DRUGS (7)
  1. HYPERSAL [Concomitant]
     Active Substance: SODIUM CHLORIDE
  2. TRIKAFTA [Suspect]
     Active Substance: ELEXACAFTOR\IVACAFTOR\TEZACAFTOR
     Indication: CYSTIC FIBROSIS
     Dosage: 2 TABS (100MG ELEXACAFTOR/50MG TEZACAFTOR/75MG IVACAFTOR) AM AND 1 TAB (150MG IVACAFTOR) PM
     Route: 048
     Dates: start: 20191115
  3. CAYSTON [Concomitant]
     Active Substance: AZTREONAM
  4. PULMOZYME [Concomitant]
     Active Substance: DORNASE ALFA
  5. RANITIDINE. [Concomitant]
     Active Substance: RANITIDINE
  6. TOBI [Concomitant]
     Active Substance: TOBRAMYCIN
  7. AZITHROMYCIN ANHYDROUS. [Concomitant]
     Active Substance: AZITHROMYCIN ANHYDROUS

REACTIONS (1)
  - Foot fracture [Unknown]

NARRATIVE: CASE EVENT DATE: 20200208
